FAERS Safety Report 9056077 (Version 1)
Quarter: 2013Q1

REPORT INFORMATION
  Report Type: Spontaneous
  Country: US (occurrence: US)
  Receive Date: 20130205
  Receipt Date: 20130205
  Transmission Date: 20140127
  Serious: Yes (Other)
  Sender: FDA-Public Use
  Company Number: US-ELI_LILLY_AND_COMPANY-US201301008827

PATIENT
  Sex: 0

DRUGS (3)
  1. CYMBALTA [Suspect]
     Indication: DEPRESSION
     Dosage: 60 MG, QD
     Dates: start: 20100611
  2. CYMBALTA [Suspect]
     Dosage: 60 MG, QD
  3. INFLUENZA VACCINE [Concomitant]

REACTIONS (1)
  - Skin cancer [Recovered/Resolved]
